FAERS Safety Report 7199306-5 (Version None)
Quarter: 2010Q4

REPORT INFORMATION
  Report Type: 
  Country: None (occurrence: None)
  Receive Date: 20101228
  Receipt Date: 20101215
  Transmission Date: 20110411
  Serious: Yes (Hospitalization, Disabling)
  Sender: FDA-Public Use
  Company Number: US-SANOFI-AVENTIS-2010SA076743

PATIENT
  Sex: Female

DRUGS (6)
  1. PLAVIX [Suspect]
     Route: 065
  2. SYNTHROID [Concomitant]
  3. TOPROL-XL [Concomitant]
  4. ASPIRIN [Concomitant]
  5. HYDROCODONE [Concomitant]
  6. PREVACID [Concomitant]

REACTIONS (8)
  - ASTHENIA [None]
  - DIARRHOEA [None]
  - EATING DISORDER [None]
  - FATIGUE [None]
  - FEELING ABNORMAL [None]
  - THYROID DISORDER [None]
  - VOMITING [None]
  - WEIGHT DECREASED [None]
